FAERS Safety Report 6993565-7 (Version None)
Quarter: 2010Q3

REPORT INFORMATION
  Report Type: 
  Country: None (occurrence: None)
  Receive Date: 20100917
  Receipt Date: 20100906
  Transmission Date: 20110219
  Serious: Yes (Hospitalization, Other)
  Sender: FDA-Public Use
  Company Number: PHHY2010DK57306

PATIENT
  Sex: Female
  Weight: 82 kg

DRUGS (1)
  1. FEMAR [Suspect]
     Dosage: 2.5 MG, QD
     Route: 048
     Dates: start: 20071015

REACTIONS (7)
  - ARTHRALGIA [None]
  - ASTHENIA [None]
  - FATIGUE [None]
  - GAIT DISTURBANCE [None]
  - MYALGIA [None]
  - SYNCOPE [None]
  - WALKING AID USER [None]
